FAERS Safety Report 7553640-5 (Version None)
Quarter: 2011Q2

REPORT INFORMATION
  Report Type: 
  Country: None (occurrence: None)
  Receive Date: 20110617
  Receipt Date: 20100722
  Transmission Date: 20111010
  Serious: No
  Sender: FDA-Public Use
  Company Number: US-MYLANLABS-2010S1013368

PATIENT
  Age: 51 Year
  Sex: Female
  Weight: 63.5 kg

DRUGS (1)
  1. OMEPRAZOLE [Suspect]
     Indication: GASTRITIS
     Route: 048
     Dates: start: 20091201, end: 20100601

REACTIONS (5)
  - HEPATIC STEATOSIS [None]
  - STRESS FRACTURE [None]
  - LIVER FUNCTION TEST ABNORMAL [None]
  - LIPASE INCREASED [None]
  - ABDOMINAL DISCOMFORT [None]
